FAERS Safety Report 5677125-6 (Version None)
Quarter: 2008Q1

REPORT INFORMATION
  Report Type: 
  Country: None (occurrence: None)
  Receive Date: 20080324
  Receipt Date: 20080313
  Transmission Date: 20080703
  Serious: Yes (Other)
  Sender: FDA-Public Use
  Company Number: HQWYE196916JUL04

PATIENT
  Sex: Female
  Weight: 71.73 kg

DRUGS (1)
  1. CONJUGATED ESTROGENS [Suspect]
     Indication: HORMONE REPLACEMENT THERAPY
     Dosage: UNSPECIFIED
     Route: 048
     Dates: start: 19800101, end: 19940101

REACTIONS (6)
  - BREAST CANCER METASTATIC [None]
  - DEPRESSION [None]
  - DIABETES MELLITUS [None]
  - NERVOUSNESS [None]
  - SLEEP DISORDER [None]
  - WEIGHT INCREASED [None]
